FAERS Safety Report 20483102 (Version 1)
Quarter: 2022Q1

REPORT INFORMATION
  Report Type: Report from Study
  Country: CA (occurrence: CA)
  Receive Date: 20220217
  Receipt Date: 20220217
  Transmission Date: 20220423
  Serious: Yes (Other)
  Sender: FDA-Public Use
  Company Number: None

PATIENT
  Age: 57 Year
  Sex: Male

DRUGS (15)
  1. METHOTREXATE [Suspect]
     Active Substance: METHOTREXATE
     Dosage: THERAPY DURATION: 912.0
     Route: 048
  2. CYCLOSPORINE [Suspect]
     Active Substance: CYCLOSPORINE
  3. FOLIC ACID [Suspect]
     Active Substance: FOLIC ACID
     Route: 048
  4. ACITRETIN [Concomitant]
     Active Substance: ACITRETIN
  5. BETADERM [Concomitant]
     Active Substance: BETAMETHASONE VALERATE
     Dosage: 1 EVERY 1 DAYS
     Route: 061
  6. CANDESARTAN [Concomitant]
     Active Substance: CANDESARTAN
     Dosage: 1 EVERY 1 DAYS
     Route: 048
  7. FUSIDIC ACID [Concomitant]
     Active Substance: FUSIDIC ACID
     Route: 061
  8. HYDROMORPHONE [Concomitant]
     Active Substance: HYDROMORPHONE
     Route: 048
  9. NAPROXEN [Concomitant]
     Active Substance: NAPROXEN
     Dosage: 2 EVERY 1 DAYS
     Route: 048
  10. OMEPRAZOLE [Concomitant]
     Active Substance: OMEPRAZOLE
     Dosage: 1 EVERY 1 DAYS
  11. PREGABALIN [Concomitant]
     Active Substance: PREGABALIN
     Dosage: 2 EVERY 1 DAYS
     Route: 048
  12. ROSUVASTATIN CALCIUM [Concomitant]
     Active Substance: ROSUVASTATIN CALCIUM
     Dosage: 1 EVERY 1 DAYS
     Route: 048
  13. VENLAFAXINE HYDROCHLORIDE [Concomitant]
     Active Substance: VENLAFAXINE HYDROCHLORIDE
     Dosage: 1 EVERY 1 DAYS
     Route: 048
  14. VITAMIN B12 [Concomitant]
     Active Substance: CYANOCOBALAMIN
     Dosage: 1 EVERY 1 DAYS
     Route: 048
  15. VITAMIN D3 [Concomitant]
     Active Substance: CHOLECALCIFEROL
     Dosage: 1 EVERY 1 DAYS
     Route: 048

REACTIONS (15)
  - Back injury [Unknown]
  - Back pain [Unknown]
  - Disturbance in attention [Unknown]
  - Haemorrhage [Unknown]
  - Intervertebral disc protrusion [Unknown]
  - Osteoarthritis [Unknown]
  - Pain [Unknown]
  - Pain in extremity [Unknown]
  - Pain of skin [Unknown]
  - Pruritus [Unknown]
  - Scoliosis [Unknown]
  - Skin fissures [Unknown]
  - Skin haemorrhage [Unknown]
  - Skin plaque [Unknown]
  - Drug ineffective [Unknown]
